FAERS Safety Report 23432751 (Version 1)
Quarter: 2024Q1

REPORT INFORMATION
  Report Type: Other
  Country: None (occurrence: TR)
  Receive Date: 20240123
  Receipt Date: 20240123
  Transmission Date: 20240410
  Serious: Yes (Hospitalization, Other)
  Sender: FDA-Public Use
  Company Number: TR-Carnegie Pharmaceuticals LLC-2151843

PATIENT
  Age: 16 Year
  Sex: Female

DRUGS (1)
  1. MEXILETINE HYDROCHLORIDE [Suspect]
     Active Substance: MEXILETINE HYDROCHLORIDE
     Indication: Erythromelalgia
     Route: 048

REACTIONS (7)
  - Dyskinesia [Recovered/Resolved]
  - Acidosis [Recovered/Resolved]
  - Ventricular fibrillation [Recovered/Resolved]
  - Loss of consciousness [Recovered/Resolved]
  - Generalised tonic-clonic seizure [Recovered/Resolved]
  - Overdose [Unknown]
  - Product use in unapproved indication [Unknown]
